FAERS Safety Report 9664567 (Version 1)
Quarter: 2013Q4

REPORT INFORMATION
  Report Type: Spontaneous
  Country: US (occurrence: US)
  Receive Date: 20131101
  Receipt Date: 20131101
  Transmission Date: 20140711
  Serious: No
  Sender: FDA-Public Use
  Company Number: US-BAYER-2013-133202

PATIENT
  Age: 54 Year
  Sex: Male
  Weight: 93 kg

DRUGS (1)
  1. ALEVE CAPLET [Suspect]
     Dosage: 2 DF, UNK
     Route: 048

REACTIONS (3)
  - Rash generalised [Recovered/Resolved]
  - Pruritus generalised [Recovered/Resolved]
  - Local swelling [None]
